FAERS Safety Report 15833391 (Version 1)
Quarter: 2019Q1

REPORT INFORMATION
  Report Type: Spontaneous
  Country: US (occurrence: US)
  Receive Date: 20190116
  Receipt Date: 20190116
  Transmission Date: 20190417
  Serious: Yes (Hospitalization)
  Sender: FDA-Public Use
  Company Number: US-BRAINTREE LABORATORIES-190022

PATIENT
  Sex: Female

DRUGS (1)
  1. NULYTELY [Suspect]
     Active Substance: POLYETHYLENE GLYCOL 3350\POTASSIUM CHLORIDE\SODIUM BICARBONATE\SODIUM CHLORIDE
     Indication: COLONOSCOPY
     Dosage: ~2L
     Route: 048
     Dates: start: 20181126, end: 20181126

REACTIONS (4)
  - Vomiting [None]
  - Electrolyte imbalance [None]
  - Seizure [None]
  - Coma [None]

NARRATIVE: CASE EVENT DATE: 20181126
